FAERS Safety Report 20913740 (Version 1)
Quarter: 2022Q2

REPORT INFORMATION
  Report Type: Spontaneous
  Country: US (occurrence: US)
  Receive Date: 20220604
  Receipt Date: 20220604
  Transmission Date: 20220721
  Serious: Yes (Hospitalization, Other)
  Sender: FDA-Public Use
  Company Number: US-UNITED THERAPEUTICS-UNT-2022-011183

PATIENT
  Age: 81 Year
  Sex: Female

DRUGS (3)
  1. REMODULIN [Suspect]
     Active Substance: TREPROSTINIL
     Indication: Pulmonary arterial hypertension
     Dosage: UNK, CONTINUING
     Route: 058
     Dates: start: 20220427
  2. REMODULIN [Suspect]
     Active Substance: TREPROSTINIL
     Dosage: 0.018 ?G/KG, CONTINUING (AT A RATE OF 0.018ML/HR)
     Route: 058
     Dates: start: 202205
  3. REMODULIN [Suspect]
     Active Substance: TREPROSTINIL
     Dosage: 0.0183 ?G/KG, CONTINUING
     Route: 058

REACTIONS (5)
  - Unresponsive to stimuli [Unknown]
  - Confusional state [Unknown]
  - Disorientation [Unknown]
  - Diarrhoea [Unknown]
  - Abdominal discomfort [Unknown]

NARRATIVE: CASE EVENT DATE: 20220501
